FAERS Safety Report 25538714 (Version 2)
Quarter: 2025Q3

REPORT INFORMATION
  Report Type: Spontaneous
  Country: US (occurrence: US)
  Receive Date: 20250710
  Receipt Date: 20250902
  Transmission Date: 20251020
  Serious: No
  Sender: SANOFI AVENTIS
  Company Number: US-SA-2025SA193229

PATIENT
  Age: 3 Year
  Sex: Male

DRUGS (1)
  1. DUPIXENT [Suspect]
     Active Substance: DUPILUMAB
     Indication: Product used for unknown indication
     Dosage: 300 MG, Q4W
     Route: 058

REACTIONS (3)
  - Photosensitivity reaction [Unknown]
  - Sunburn [Not Recovered/Not Resolved]
  - Condition aggravated [Not Recovered/Not Resolved]
